FAERS Safety Report 14823216 (Version 3)
Quarter: 2018Q2

REPORT INFORMATION
  Report Type: Report from Study
  Country: JP (occurrence: JP)
  Receive Date: 20180427
  Receipt Date: 20180528
  Transmission Date: 20180711
  Serious: Yes (Death, Hospitalization)
  Sender: FDA-Public Use
  Company Number: PHJP2018JP009543

PATIENT
  Age: 69 Year
  Sex: Male

DRUGS (3)
  1. FARYDAK [Suspect]
     Active Substance: PANOBINOSTAT
     Indication: PLASMA CELL MYELOMA
     Dosage: 10 MG, QD(6 ADMINISTRATIONS PER CYCLE )
     Route: 048
     Dates: start: 20151102, end: 20151122
  2. DEXAMETHASONE. [Concomitant]
     Active Substance: DEXAMETHASONE
     Indication: PLASMA CELL MYELOMA
     Dosage: UNK
     Route: 065
     Dates: start: 20151102, end: 20151122
  3. BORTEZOMIB [Concomitant]
     Active Substance: BORTEZOMIB
     Indication: PLASMA CELL MYELOMA
     Dosage: 0.7 MG/M2, QW2
     Route: 058
     Dates: start: 20151102, end: 20151122

REACTIONS (4)
  - Plasma cell myeloma [Fatal]
  - Diarrhoea [Not Recovered/Not Resolved]
  - Malignant neoplasm progression [Fatal]
  - Renal failure [Fatal]

NARRATIVE: CASE EVENT DATE: 20151106
